FAERS Safety Report 5341362-0 (Version None)
Quarter: 2007Q2

REPORT INFORMATION
  Report Type: 
  Country: None (occurrence: None)
  Receive Date: 20070530
  Receipt Date: 20070521
  Transmission Date: 20071010
  Serious: Yes (Death)
  Sender: FDA-Public Use
  Company Number: E3810-00854-SOL-US

PATIENT
  Age: 87 Year
  Sex: Male

DRUGS (5)
  1. ACIPHEX [Suspect]
     Indication: GASTROOESOPHAGEAL REFLUX DISEASE
     Dosage: 20 MG, ORAL; YEARS AGO
     Route: 048
  2. KARAX (ERYTHROMYCIN STINOPRATE) [Concomitant]
  3. TYLENOL [Concomitant]
  4. THERAGEN (CAPSAICIN) [Concomitant]
  5. AVALIDE (KARVEA HCT) [Concomitant]

REACTIONS (1)
  - CARDIAC FAILURE [None]
